FAERS Safety Report 9858530 (Version 2)
Quarter: 2014Q1

REPORT INFORMATION
  Report Type: Report from Study
  Country: HU (occurrence: HU)
  Receive Date: 20140131
  Receipt Date: 20140131
  Transmission Date: 20141002
  Serious: Yes (Other)
  Sender: FDA-Public Use
  Company Number: HU-NOVOPROD-397957

PATIENT
  Age: 43 Year
  Sex: Female
  Weight: 95 kg

DRUGS (11)
  1. LIRAGLUTIDE FLEXPEN [Suspect]
     Indication: TYPE 2 DIABETES MELLITUS
     Dosage: 0.6 MG, QD
     Route: 058
     Dates: start: 20131212, end: 201312
  2. LIRAGLUTIDE FLEXPEN [Suspect]
     Dosage: 1.2 MG, QD
     Route: 058
     Dates: start: 201312
  3. LIRAGLUTIDE FLEXPEN [Suspect]
     Dosage: 0.6 MG, QD
     Route: 058
     Dates: end: 20140103
  4. XANAX [Concomitant]
  5. LORATADINE [Concomitant]
  6. FLECTOR                            /00372302/ [Concomitant]
  7. CO-RENITEC [Concomitant]
     Indication: HYPERTONIA
     Dosage: UNK (1X1 DAILY)
     Route: 048
     Dates: start: 2004
  8. CONCOR [Concomitant]
     Indication: HYPERTONIA
     Dosage: UNK (1X1 DAILY)
     Route: 048
     Dates: start: 2004
  9. MINIPRESS [Concomitant]
     Indication: HYPERTONIA
     Dosage: UNK (1X1 DAILY)
     Route: 048
     Dates: start: 2004
  10. ZOCOR [Concomitant]
     Indication: DYSLIPIDAEMIA
     Dosage: UNK (1X1 DAILY)
     Route: 048
     Dates: start: 2008
  11. MEFORAL                            /00082701/ [Concomitant]
     Indication: TYPE 2 DIABETES MELLITUS
     Dosage: UNK (2X1 DAILY)
     Route: 048
     Dates: start: 2008

REACTIONS (1)
  - Generalised oedema [Recovered/Resolved]
